FAERS Safety Report 23333489 (Version 2)
Quarter: 2023Q4

REPORT INFORMATION
  Report Type: Spontaneous
  Country: US (occurrence: US)
  Receive Date: 20231222
  Receipt Date: 20231222
  Transmission Date: 20240110
  Serious: No
  Sender: FDA-Public Use
  Company Number: US-VERO BIOTECH-2023001007

PATIENT

DRUGS (1)
  1. GENOSYL [Suspect]
     Active Substance: NITRIC OXIDE

REACTIONS (1)
  - Device issue [None]
